FAERS Safety Report 6955488-9 (Version None)
Quarter: 2010Q3

REPORT INFORMATION
  Report Type: 
  Country: None (occurrence: None)
  Receive Date: 20100830
  Receipt Date: 20100818
  Transmission Date: 20110219
  Serious: Yes (Other)
  Sender: FDA-Public Use
  Company Number: JP-PFIZER INC-2010103704

PATIENT
  Age: 75 Year
  Sex: Female

DRUGS (3)
  1. DETRUSITOL [Suspect]
     Dosage: 2 MG, UNK
     Route: 048
  2. ARICEPT [Concomitant]
     Dosage: UNK
     Route: 048
  3. FUROSEMIDE [Concomitant]
     Dosage: 1.5 DF, UNK
     Route: 048

REACTIONS (2)
  - FACE OEDEMA [None]
  - OEDEMA PERIPHERAL [None]
